FAERS Safety Report 5520660-1 (Version None)
Quarter: 2007Q4

REPORT INFORMATION
  Report Type: 
  Country: None (occurrence: None)
  Receive Date: 20071119
  Receipt Date: 20071107
  Transmission Date: 20080405
  Serious: Yes (Other)
  Sender: FDA-Public Use
  Company Number: JP-PFIZER INC-2007094224

PATIENT
  Sex: Female

DRUGS (2)
  1. NORVASC [Suspect]
     Route: 048
  2. BLOPRESS [Concomitant]
     Route: 048

REACTIONS (1)
  - RENAL IMPAIRMENT [None]
